FAERS Safety Report 13497844 (Version 4)
Quarter: 2017Q2

REPORT INFORMATION
  Report Type: Spontaneous
  Country: US (occurrence: US)
  Receive Date: 20170428
  Receipt Date: 20170607
  Transmission Date: 20170830
  Serious: Yes (Other)
  Sender: FDA-Public Use
  Company Number: US-SAOL THERAPEUTICS-2017SAO00789

PATIENT
  Age: 47 Year
  Sex: Male
  Weight: 78.5 kg

DRUGS (5)
  1. COMPOUNDED BACLOFEN [Suspect]
     Active Substance: BACLOFEN
     Indication: MUSCLE SPASTICITY
  2. COMPOUNDED BACLOFEN [Suspect]
     Active Substance: BACLOFEN
     Indication: CRANIOCEREBRAL INJURY
     Dosage: UNK ?G, \DAY
     Route: 037
  3. DILAUDID [Suspect]
     Active Substance: HYDROMORPHONE HYDROCHLORIDE
     Dosage: 0.018 MG, \DAY
     Route: 037
     Dates: start: 20170419
  4. BACLOFEN. [Suspect]
     Active Substance: BACLOFEN
     Indication: MUSCLE SPASTICITY
     Dosage: 12.5 ?G, \DAY
     Dates: start: 20170419
  5. BACLOFEN. [Suspect]
     Active Substance: BACLOFEN
     Indication: CRANIOCEREBRAL INJURY
     Dosage: 1928.2 ?G, \DAY
     Route: 037

REACTIONS (4)
  - Device leakage [Recovered/Resolved]
  - Muscle contracture [Recovered/Resolved]
  - Device failure [Recovered/Resolved]
  - Device damage [Recovered/Resolved]

NARRATIVE: CASE EVENT DATE: 20170208
